FAERS Safety Report 19283923 (Version 7)
Quarter: 2022Q3

REPORT INFORMATION
  Report Type: Spontaneous
  Country: IN (occurrence: IN)
  Receive Date: 20210521
  Receipt Date: 20220802
  Transmission Date: 20221026
  Serious: Yes (Other)
  Sender: FDA-Public Use
  Company Number: IN-PFIZER INC-2021542880

PATIENT
  Age: 71 Year
  Sex: Female

DRUGS (3)
  1. PALBOCICLIB [Suspect]
     Active Substance: PALBOCICLIB
     Dosage: 125 MG, 1X/DAY
     Route: 048
     Dates: start: 20210304
  2. FULVESTRANT [Concomitant]
     Active Substance: FULVESTRANT
     Indication: Breast cancer
     Dosage: IN EACH BUTTOCK (500 MG TOTAL)
     Route: 030
  3. CALCIUM\CHOLECALCIFEROL [Concomitant]
     Active Substance: CALCIUM\CHOLECALCIFEROL
     Dosage: 500 MG

REACTIONS (5)
  - Deep vein thrombosis [Unknown]
  - Leukopenia [Unknown]
  - Peripheral swelling [Unknown]
  - Pallor [Not Recovered/Not Resolved]
  - Oedema peripheral [Unknown]
